FAERS Safety Report 16771385 (Version 9)
Quarter: 2022Q1

REPORT INFORMATION
  Report Type: Spontaneous
  Country: US (occurrence: US)
  Receive Date: 20190904
  Receipt Date: 20220324
  Transmission Date: 20220424
  Serious: No
  Sender: FDA-Public Use
  Company Number: US-PFIZER INC-2019357922

PATIENT
  Age: 63 Year
  Sex: Female
  Weight: 122.02 kg

DRUGS (4)
  1. DILANTIN [Suspect]
     Active Substance: PHENYTOIN
     Indication: Seizure
     Dosage: 60 MG, 1X/DAY [2 CAP(S) AT BEDTIME DAILY 3 MONTHS]
     Route: 048
  2. DILANTIN [Suspect]
     Active Substance: PHENYTOIN
     Indication: Epilepsy
     Dosage: 300 MG, 1X/DAY
     Route: 048
  3. DILANTIN [Suspect]
     Active Substance: PHENYTOIN
     Dosage: 300 MG, DAILY (3 CAPSULES BRAND NAME ONLY DAILY 90 DAY(S))
     Route: 048
  4. VALSARTAN [Concomitant]
     Active Substance: VALSARTAN
     Indication: Hypertension
     Dosage: UNK

REACTIONS (3)
  - Drug ineffective [Unknown]
  - Illness [Unknown]
  - Nervousness [Unknown]

NARRATIVE: CASE EVENT DATE: 20190701
